FAERS Safety Report 10188936 (Version 1)
Quarter: 2014Q2

REPORT INFORMATION
  Report Type: Spontaneous
  Country: US (occurrence: US)
  Receive Date: 20140522
  Receipt Date: 20140522
  Transmission Date: 20141212
  Serious: No
  Sender: FDA-Public Use
  Company Number: US-BAYER-2014-076074

PATIENT
  Age: 88 Year
  Sex: Female
  Weight: 52.15 kg

DRUGS (2)
  1. ALEVE CAPLET [Suspect]
     Indication: ARTHRITIS
     Dosage: UNK UNK, PRN
     Route: 048
  2. LEVOTHYROXINE [Concomitant]

REACTIONS (1)
  - Drug ineffective [None]
